FAERS Safety Report 9914257 (Version 1)
Quarter: 2014Q1

REPORT INFORMATION
  Report Type: Spontaneous
  Country: US (occurrence: None)
  Receive Date: 20140219
  Receipt Date: 20140219
  Transmission Date: 20141002
  Serious: Yes (Other)
  Sender: FDA-Public Use
  Company Number: None

PATIENT
  Age: 21 Year
  Sex: Female
  Weight: 50.8 kg

DRUGS (1)
  1. LO LOESTRIN FE [Suspect]
     Indication: CONTRACEPTION
     Dosage: 1 PILL ONCE DAILY
     Route: 048
     Dates: start: 20130723, end: 20131125

REACTIONS (3)
  - Panic attack [None]
  - Abnormal behaviour [None]
  - Anxiety [None]
